FAERS Safety Report 6433415-0 (Version None)
Quarter: 2009Q4

REPORT INFORMATION
  Report Type: 
  Country: None (occurrence: None)
  Receive Date: 20091106
  Receipt Date: 20091106
  Transmission Date: 20100525
  Serious: Yes (Other)
  Sender: FDA-Public Use
  Company Number: None

PATIENT
  Age: 8 Year
  Sex: Male
  Weight: 46.2669 kg

DRUGS (1)
  1. VYVANSE [Suspect]
     Indication: ATTENTION DEFICIT/HYPERACTIVITY DISORDER
     Dosage: 1 TIMES DAILY PO
     Route: 048
     Dates: start: 20070112, end: 20091027

REACTIONS (3)
  - DECREASED APPETITE [None]
  - METABOLIC DISORDER [None]
  - WEIGHT INCREASED [None]
